FAERS Safety Report 13687349 (Version 1)
Quarter: 2017Q2

REPORT INFORMATION
  Report Type: Report from Study
  Country: None (occurrence: CO)
  Receive Date: 20170623
  Receipt Date: 20170623
  Transmission Date: 20170830
  Serious: Yes (Death)
  Sender: FDA-Public Use
  Company Number: CO-ABBVIE-17K-036-2017558-00

PATIENT
  Age: 76 Year
  Sex: Female

DRUGS (1)
  1. ZEMPLAR [Suspect]
     Active Substance: PARICALCITOL
     Indication: HYPERPARATHYROIDISM SECONDARY
     Dosage: POST DIALYSIS
     Route: 042
     Dates: start: 20160218, end: 20170213

REACTIONS (7)
  - General physical health deterioration [Fatal]
  - Headache [Fatal]
  - Chest pain [Fatal]
  - Pyrexia [Fatal]
  - Malaise [Fatal]
  - Cough [Fatal]
  - Pneumonia [Fatal]

NARRATIVE: CASE EVENT DATE: 20170528
